FAERS Safety Report 13762339 (Version 1)
Quarter: 2017Q3

REPORT INFORMATION
  Report Type: Report from Study
  Country: DE (occurrence: DE)
  Receive Date: 20170718
  Receipt Date: 20170718
  Transmission Date: 20171127
  Serious: Yes (Death, Other)
  Sender: FDA-Public Use
  Company Number: DE-ROCHE-1962923

PATIENT
  Sex: Female
  Weight: 62 kg

DRUGS (6)
  1. CAPECITABINE. [Suspect]
     Active Substance: CAPECITABINE
     Indication: BREAST CANCER METASTATIC
     Dosage: ON DAYS 1 RO 14 OF A 21-DAY CYCLE
     Route: 048
  2. MITOMYCIN C [Suspect]
     Active Substance: MITOMYCIN
     Indication: BREAST CANCER METASTATIC
     Dosage: ON DAY 1 OF A 21-DAY CYCLE
     Route: 040
  3. CAPECITABINE. [Suspect]
     Active Substance: CAPECITABINE
     Dosage: ON DAYS 1 RO 14 OF A 21-DAY CYCLE?DOSE REDUCED TO 75%
     Route: 048
  4. MITOMYCIN C [Suspect]
     Active Substance: MITOMYCIN
     Dosage: ON DAY 1 OF A 21-DAY CYCLE?DOSE REDUCED TO 75%
     Route: 040
  5. CAPECITABINE. [Suspect]
     Active Substance: CAPECITABINE
     Dosage: ON DAYS 1 RO 14 OF A 21-DAY CYCLE?DOSE REDUCED TO 50%
     Route: 048
  6. MITOMYCIN C [Suspect]
     Active Substance: MITOMYCIN
     Dosage: ON DAY 1 OF A 21-DAY CYCLE?DOSE REDUCED TO 50%
     Route: 040

REACTIONS (3)
  - Nausea [Unknown]
  - Stomatitis [Unknown]
  - Mucosal inflammation [Unknown]
